FAERS Safety Report 16490020 (Version 2)
Quarter: 2019Q2

REPORT INFORMATION
  Report Type: Spontaneous
  Country: ID (occurrence: ID)
  Receive Date: 20190628
  Receipt Date: 20190628
  Transmission Date: 20190711
  Serious: Yes (Death)
  Sender: FDA-Public Use
  Company Number: ID-BAYER-2019-119821

PATIENT
  Age: 54 Year
  Sex: Male

DRUGS (2)
  1. NEXAVAR [Suspect]
     Active Substance: SORAFENIB
     Indication: HEPATOCELLULAR CARCINOMA
     Dosage: 200 MG, BID
     Route: 048
     Dates: start: 20190531
  2. HEPATOSOLUT [Concomitant]
     Dosage: UNK

REACTIONS (2)
  - Death [Fatal]
  - Chapped lips [Recovered/Resolved]

NARRATIVE: CASE EVENT DATE: 20190607
